FAERS Safety Report 12821092 (Version 2)
Quarter: 2016Q4

REPORT INFORMATION
  Report Type: Spontaneous
  Country: US (occurrence: US)
  Receive Date: 20161006
  Receipt Date: 20161012
  Transmission Date: 20170207
  Serious: Yes (Hospitalization)
  Sender: FDA-Public Use
  Company Number: US-PFIZER INC-2016464310

PATIENT
  Age: 66 Year
  Sex: Male
  Weight: 79 kg

DRUGS (5)
  1. VFEND [Suspect]
     Active Substance: VORICONAZOLE
     Dosage: 400 MG, 2X/DAY
     Dates: start: 20160921, end: 20160922
  2. VFEND [Suspect]
     Active Substance: VORICONAZOLE
     Indication: PULMONARY MYCOSIS
     Dosage: 500 MG (2 PILLS 200MG AND 2 PILLS 50MG), 2X/DAY
     Dates: start: 201609, end: 20160920
  3. ACYCLOVIR /00587301/ [Concomitant]
     Active Substance: ACYCLOVIR
     Indication: ANTIBIOTIC THERAPY
     Dosage: 800 MG, 2X/DAY
  4. DOXYCYCLINE. [Concomitant]
     Active Substance: DOXYCYCLINE
     Indication: ANTIBIOTIC THERAPY
     Dosage: 100 MG, 2X/DAY
     Dates: start: 20160927
  5. VFEND [Suspect]
     Active Substance: VORICONAZOLE
     Dosage: 500 MG (2 PILLS 200MG AND 2 PILLS 50MG), 2X/DAY
     Dates: start: 201609, end: 20160920

REACTIONS (3)
  - Liver function test increased [Unknown]
  - Body temperature increased [Recovered/Resolved]
  - Prescribed overdose [Unknown]

NARRATIVE: CASE EVENT DATE: 201609
